FAERS Safety Report 9127290 (Version 1)
Quarter: 2013Q1

REPORT INFORMATION
  Report Type: Spontaneous
  Country: US (occurrence: US)
  Receive Date: 20130228
  Receipt Date: 20130228
  Transmission Date: 20140127
  Serious: No
  Sender: FDA-Public Use
  Company Number: US-GLAXOSMITHKLINE-A0966722A

PATIENT
  Age: 62 Year
  Sex: Male

DRUGS (6)
  1. LAMOTRIGINE [Suspect]
     Indication: BIPOLAR DISORDER
     Dosage: 225MG PER DAY
     Route: 048
     Dates: start: 201107
  2. CYMBALTA [Concomitant]
  3. CLONAZEPAM [Concomitant]
  4. BABY ASPIRIN [Concomitant]
  5. ZOCOR [Concomitant]
  6. LISINOPRIL [Concomitant]

REACTIONS (3)
  - Pruritus generalised [Recovered/Resolved]
  - Rash [Unknown]
  - Rash macular [Unknown]
